FAERS Safety Report 5667324-1 (Version None)
Quarter: 2008Q1

REPORT INFORMATION
  Report Type: 
  Country: None (occurrence: None)
  Receive Date: 20080315
  Receipt Date: 20080121
  Transmission Date: 20080703
  Serious: No
  Sender: FDA-Public Use
  Company Number: US-ABBOTT-08P-163-0434377-00

PATIENT
  Sex: Female

DRUGS (5)
  1. HUMIRA [Suspect]
     Indication: PSORIATIC ARTHROPATHY
     Route: 058
     Dates: start: 20070101, end: 20080123
  2. ATENOLOL [Concomitant]
     Indication: ATRIOVENTRICULAR BLOCK
     Route: 048
  3. ATENOLOL [Concomitant]
     Indication: HEART RATE IRREGULAR
  4. FUROSEMIDE [Concomitant]
     Indication: BLOOD PRESSURE
     Route: 048
  5. TRAMADOL HCL [Concomitant]
     Indication: PAIN
     Route: 048

REACTIONS (9)
  - ARTHRALGIA [None]
  - ASTHENIA [None]
  - CHILLS [None]
  - DIARRHOEA [None]
  - EYE PAIN [None]
  - PYREXIA [None]
  - STAPHYLOCOCCAL INFECTION [None]
  - SUPERFICIAL INJURY OF EYE [None]
  - VIRAL INFECTION [None]
